FAERS Safety Report 17114440 (Version 2)
Quarter: 2021Q3

REPORT INFORMATION
  Report Type: Spontaneous
  Country: NZ (occurrence: NZ)
  Receive Date: 20191205
  Receipt Date: 20210702
  Transmission Date: 20211014
  Serious: No
  Sender: FDA-Public Use
  Company Number: NZ-GLAXOSMITHKLINE-NZ2019APC219488

PATIENT
  Sex: Male

DRUGS (1)
  1. HABITROL [Suspect]
     Active Substance: NICOTINE
     Indication: SMOKING CESSATION THERAPY
     Dosage: UNK(2MG)

REACTIONS (2)
  - Product availability issue [Unknown]
  - Nicotine dependence [Unknown]
